FAERS Safety Report 6990467-7 (Version None)
Quarter: 2010Q3

REPORT INFORMATION
  Report Type: 
  Country: None (occurrence: None)
  Receive Date: 20100916
  Receipt Date: 20100626
  Transmission Date: 20110219
  Serious: Yes (Other)
  Sender: FDA-Public Use
  Company Number: FR-PFIZER INC-2010080235

PATIENT
  Age: 70 Year
  Sex: Female

DRUGS (3)
  1. LYRICA [Suspect]
     Dosage: 50MG IN THE MORNING, 50MG IN THE EVENING
  2. LYRICA [Suspect]
     Dosage: 50MG IN THE MORNING, 75MG IN THE EVENING
  3. LYRICA [Suspect]
     Dosage: 75MG IN THE MORNING, 75MG IN THE EVENING

REACTIONS (4)
  - DRY MOUTH [None]
  - FATIGUE [None]
  - PAIN [None]
  - PALPITATIONS [None]
